FAERS Safety Report 5528525-6 (Version None)
Quarter: 2007Q4

REPORT INFORMATION
  Report Type: 
  Country: None (occurrence: None)
  Receive Date: 20071123
  Receipt Date: 20071107
  Transmission Date: 20080405
  Serious: Yes (Hospitalization)
  Sender: FDA-Public Use
  Company Number: PHO-2007-051

PATIENT
  Age: 66 Year
  Sex: Female

DRUGS (1)
  1. PHOTOFRIN [Suspect]
     Indication: MALIGNANT HEPATOBILIARY NEOPLASM
     Dosage: 106MG
     Route: 042
     Dates: start: 20070721

REACTIONS (3)
  - BLOOD BILIRUBIN INCREASED [None]
  - HYPOTENSION [None]
  - SEPSIS [None]
